FAERS Safety Report 24815640 (Version 1)
Quarter: 2025Q1

REPORT INFORMATION
  Report Type: Spontaneous
  Country: BR (occurrence: BR)
  Receive Date: 20250107
  Receipt Date: 20250107
  Transmission Date: 20250409
  Serious: Yes (Other)
  Sender: INCYTE
  Company Number: BR-002147023-NVSC2024BR237190

PATIENT

DRUGS (1)
  1. RUXOLITINIB [Suspect]
     Active Substance: RUXOLITINIB
     Indication: Myelofibrosis
     Dosage: 20 MG, Q12H (20 MG COM CT BLISTER ALUMINUM PLAS TRANS X 60) (2 TABLETS A DAY FOR AN INDEFINITE PERIO
     Route: 065
     Dates: start: 201908

REACTIONS (11)
  - Angina pectoris [Unknown]
  - Anaemia [Unknown]
  - Arterial disorder [Unknown]
  - Diabetes mellitus [Unknown]
  - Red blood cell elliptocytes present [Unknown]
  - Limb discomfort [Unknown]
  - Product prescribing issue [Unknown]
  - Pain [Unknown]
  - Asthenia [Unknown]
  - Malaise [Unknown]
  - Splenomegaly [Unknown]

NARRATIVE: CASE EVENT DATE: 20240101
